FAERS Safety Report 25438447 (Version 1)
Quarter: 2025Q2

REPORT INFORMATION
  Report Type: Spontaneous
  Country: NL (occurrence: NL)
  Receive Date: 20250616
  Receipt Date: 20250616
  Transmission Date: 20250717
  Serious: Yes (Other)
  Sender: STRIDES
  Company Number: NL-STRIDES ARCOLAB LIMITED-2025SP007283

PATIENT
  Sex: Female

DRUGS (1)
  1. CYCLOSPORINE [Suspect]
     Active Substance: CYCLOSPORINE
     Indication: Immunosuppressant drug therapy
     Route: 065

REACTIONS (5)
  - HELLP syndrome [Unknown]
  - Premature delivery [Unknown]
  - Renal impairment [Unknown]
  - Immunosuppressant drug level increased [Unknown]
  - Maternal exposure during pregnancy [Unknown]
